FAERS Safety Report 9674865 (Version 3)
Quarter: 2013Q4

REPORT INFORMATION
  Report Type: Report from Study
  Country: AU (occurrence: AU)
  Receive Date: 20131107
  Receipt Date: 20131121
  Transmission Date: 20140711
  Serious: Yes (Other)
  Sender: FDA-Public Use
  Company Number: PHHY2013AU026632

PATIENT
  Age: 70 Year
  Sex: Female

DRUGS (6)
  1. ACLASTA [Suspect]
     Indication: OSTEOPOROSIS
     Dosage: 5 MG, UNK
     Route: 042
     Dates: start: 20090728
  2. ACLASTA [Suspect]
     Dosage: 5 MG, UNK
     Route: 042
     Dates: start: 20110224
  3. ACLASTA [Suspect]
     Dosage: 5 MG, UNK
     Route: 042
     Dates: start: 20120307
  4. ACLASTA [Suspect]
     Dosage: 5 MG, UNK
     Route: 042
     Dates: start: 20130827
  5. ANGIOTENSIN II ANTAGONISTS [Concomitant]
     Dosage: UNK
  6. VITAMIN D3 [Concomitant]
     Dosage: UNK

REACTIONS (3)
  - Renal cancer [Recovered/Resolved]
  - Renal pain [Unknown]
  - Deep vein thrombosis [Unknown]
